FAERS Safety Report 20471139 (Version 1)
Quarter: 2022Q1

REPORT INFORMATION
  Report Type: Spontaneous
  Country: US (occurrence: US)
  Receive Date: 20220214
  Receipt Date: 20220214
  Transmission Date: 20220423
  Serious: Yes (Other)
  Sender: FDA-Public Use
  Company Number: US-PFIZER INC-202200182242

PATIENT
  Age: 61 Year
  Sex: Male

DRUGS (4)
  1. RITUXIMAB [Suspect]
     Active Substance: RITUXIMAB
     Indication: Immunochemotherapy
     Dosage: UNK
  2. RITUXIMAB [Suspect]
     Active Substance: RITUXIMAB
     Indication: Follicular lymphoma
  3. COPANLISIB [Suspect]
     Active Substance: COPANLISIB
     Indication: Immunochemotherapy
     Dosage: UNK
  4. COPANLISIB [Suspect]
     Active Substance: COPANLISIB
     Indication: Follicular lymphoma

REACTIONS (1)
  - Granuloma [Recovered/Resolved]
